FAERS Safety Report 5091960-7 (Version None)
Quarter: 2006Q3

REPORT INFORMATION
  Report Type: 
  Country: None (occurrence: None)
  Receive Date: 20060825
  Receipt Date: 20060816
  Transmission Date: 20061208
  Serious: Yes (Hospitalization)
  Sender: FDA-Public Use
  Company Number: GXKR2006GB04902

PATIENT
  Age: 81 Year

DRUGS (4)
  1. ASPIRIN [Suspect]
     Indication: CEREBROVASCULAR ACCIDENT
     Dosage: 75 MG, QD; ORAL
     Route: 048
     Dates: start: 19990101, end: 20060418
  2. DIAZEPAM [Concomitant]
  3. LISINOPRIL [Concomitant]
  4. RANITIDINE [Concomitant]

REACTIONS (2)
  - GASTRIC ULCER [None]
  - MELAENA [None]
